FAERS Safety Report 8448069-1 (Version None)
Quarter: 2012Q2

REPORT INFORMATION
  Report Type: 
  Country: None (occurrence: None)
  Receive Date: 20120619
  Receipt Date: 20120611
  Transmission Date: 20120825
  Serious: Yes (Other)
  Sender: FDA-Public Use
  Company Number: US-ABBOTT-12P-163-0943988-00

PATIENT
  Sex: Female
  Weight: 72.64 kg

DRUGS (3)
  1. LEVEMIR [Concomitant]
     Indication: DIABETES MELLITUS
  2. HUMIRA [Suspect]
     Indication: PSORIASIS
     Route: 058
     Dates: start: 20110601, end: 20120607
  3. ELAVIL [Concomitant]
     Indication: PRODUCT USED FOR UNKNOWN INDICATION

REACTIONS (7)
  - SWELLING FACE [None]
  - TONGUE DISORDER [None]
  - RASH MACULAR [None]
  - NEUROPATHY PERIPHERAL [None]
  - EXCORIATION [None]
  - SWOLLEN TONGUE [None]
  - RASH [None]
